FAERS Safety Report 5707336-2 (Version None)
Quarter: 2008Q2

REPORT INFORMATION
  Report Type: 
  Country: None (occurrence: None)
  Receive Date: 20080416
  Receipt Date: 20080407
  Transmission Date: 20081010
  Serious: Yes (Other)
  Sender: FDA-Public Use
  Company Number: MY-ROCHE-557521

PATIENT
  Age: 17 Year
  Sex: Female

DRUGS (4)
  1. CELLCEPT [Suspect]
     Route: 048
     Dates: start: 20071001, end: 20071004
  2. RANITIDINE [Concomitant]
  3. PENICILLIN V [Concomitant]
  4. CALCITRIOL [Concomitant]

REACTIONS (1)
  - STEVENS-JOHNSON SYNDROME [None]
